FAERS Safety Report 8230749-4 (Version None)
Quarter: 2012Q1

REPORT INFORMATION
  Report Type: 
  Country: None (occurrence: None)
  Receive Date: 20120323
  Receipt Date: 20120312
  Transmission Date: 20120608
  Serious: Yes (Life-Threatening, Hospitalization)
  Sender: FDA-Public Use
  Company Number: DE-JNJFOC-20120306652

PATIENT
  Age: 44 Year
  Sex: Male
  Weight: 80 kg

DRUGS (15)
  1. METOPROLOL TARTRATE AND HYDROCHLOROTHIAZIDE [Concomitant]
  2. PANTOPRAZOLE [Concomitant]
  3. RAMIPRIL [Concomitant]
  4. REMICADE [Suspect]
     Indication: PSORIATIC ARTHROPATHY
     Route: 042
     Dates: start: 20060101, end: 20110901
  5. AMLODIPINE [Concomitant]
  6. PALLADONE [Concomitant]
  7. ROCALTROL [Concomitant]
  8. PREDNISOLONE [Concomitant]
  9. METAMIZOLE [Concomitant]
  10. BENOLEA [Concomitant]
  11. AMITRIPTYLINE HCL [Concomitant]
  12. SODIUM FERRIC GLUCONATE COMPLEX [Concomitant]
  13. SILAPO [Concomitant]
  14. CALCIUM ACETATE [Concomitant]
  15. DIGITOXIN TAB [Concomitant]

REACTIONS (1)
  - RENAL CELL CARCINOMA [None]
